FAERS Safety Report 7669343-2 (Version None)
Quarter: 2011Q3

REPORT INFORMATION
  Report Type: 
  Country: None (occurrence: None)
  Receive Date: 20110808
  Receipt Date: 20110803
  Transmission Date: 20111222
  Serious: Yes (Other)
  Sender: FDA-Public Use
  Company Number: PHHY2011CA70087

PATIENT
  Sex: Female

DRUGS (2)
  1. EXJADE [Suspect]
  2. EPREX [Concomitant]

REACTIONS (2)
  - EYE PAIN [None]
  - HAEMOGLOBIN DECREASED [None]
